FAERS Safety Report 12140953 (Version 1)
Quarter: 2016Q1

REPORT INFORMATION
  Report Type: Spontaneous
  Country: US (occurrence: None)
  Receive Date: 20160302
  Receipt Date: 20160302
  Transmission Date: 20160526
  Serious: Yes (Life-Threatening, Hospitalization)
  Sender: FDA-Public Use
  Company Number: None

PATIENT
  Age: 7 Year
  Sex: Female
  Weight: 29.48 kg

DRUGS (2)
  1. INTUNIV 3MG GENERIC FORM GUANFACINE [Suspect]
     Active Substance: GUANFACINE HYDROCHLORIDE
     Indication: ATTENTION DEFICIT/HYPERACTIVITY DISORDER
     Dosage: 1 TABLET QD ORAL
     Route: 048
  2. INVEGA [Suspect]
     Active Substance: PALIPERIDONE

REACTIONS (8)
  - Anticholinergic syndrome [None]
  - Mydriasis [None]
  - Tachycardia [None]
  - Muscle spasms [None]
  - Wrong drug administered [None]
  - Drug dispensing error [None]
  - Trismus [None]
  - Dystonia [None]

NARRATIVE: CASE EVENT DATE: 20160227
